FAERS Safety Report 7864793 (Version 2)
Quarter: 2014Q2

REPORT INFORMATION
  Report Type: Spontaneous
  Country: JP (occurrence: JP)
  Receive Date: 20110321
  Receipt Date: 20140613
  Transmission Date: 20141212
  Serious: Yes (Life-Threatening, Hospitalization, Other)
  Sender: FDA-Public Use
  Company Number: JP-ASTRAZENECA-2011SE13749

PATIENT
  Age: 61 Year
  Sex: Female
  Weight: 52.6 kg

DRUGS (17)
  1. OMEPRAL [Suspect]
     Indication: GASTRITIS
     Route: 048
     Dates: start: 20070629
  2. METHOTREXATE SODIUM [Suspect]
     Indication: RHEUMATOID ARTHRITIS
     Route: 048
     Dates: start: 20091221, end: 20100628
  3. METHOTREXATE SODIUM [Suspect]
     Indication: RHEUMATOID ARTHRITIS
     Route: 048
     Dates: start: 20070730, end: 20090303
  4. METHOTREXATE SODIUM [Suspect]
     Indication: RHEUMATOID ARTHRITIS
     Route: 048
     Dates: start: 20100726
  5. METHOTREXATE SODIUM [Suspect]
     Indication: RHEUMATOID ARTHRITIS
     Route: 048
     Dates: start: 20090309
  6. CP 690, 550, PLACEBO [Suspect]
     Indication: RHEUMATOID ARTHRITIS
     Dosage: TWO TIMES A DAY.
     Route: 065
     Dates: start: 20100215, end: 20100630
  7. NORVASC [Suspect]
     Route: 048
     Dates: start: 20091024
  8. FOLIAMIN [Suspect]
     Indication: RHEUMATOID ARTHRITIS
     Route: 048
     Dates: start: 20090826, end: 20100629
  9. FOLIAMIN [Suspect]
     Indication: RHEUMATOID ARTHRITIS
     Route: 048
     Dates: start: 20100727
  10. ALFAROL [Suspect]
     Indication: OSTEOPOROSIS
     Route: 048
     Dates: start: 20041028
  11. MICARDIS [Suspect]
     Indication: HYPERTENSION
     Route: 048
     Dates: start: 20080620, end: 20100906
  12. METHYCOBAL [Suspect]
     Indication: MENIERE^S DISEASE
     Dosage: AS REQUIRED.
     Route: 048
     Dates: start: 2008
  13. ADETPHOS [Suspect]
     Indication: MENIERE^S DISEASE
     Dosage: AS REQUIRED.
     Route: 048
     Dates: start: 2008
  14. CEPHADOL [Suspect]
     Indication: MENIERE^S DISEASE
     Dosage: AS REQUIRED.
     Route: 048
     Dates: start: 2008
  15. HYALEIN [Suspect]
     Dosage: FOUR TIMES A DAY.
     Route: 031
     Dates: start: 2009
  16. CRAVIT [Suspect]
     Indication: CONJUNCTIVITIS
     Dosage: THREE TIMES A DAY.
     Route: 031
     Dates: start: 2009
  17. FLUMETHOLON [Suspect]
     Indication: CONJUNCTIVITIS
     Dosage: THREE TIMES A DAY.
     Route: 031
     Dates: start: 2009

REACTIONS (1)
  - Basal cell carcinoma [Recovering/Resolving]
